FAERS Safety Report 4444324-0 (Version None)
Quarter: 2004Q3

REPORT INFORMATION
  Report Type: 
  Country: None (occurrence: None)
  Receive Date: 20040729
  Receipt Date: 20031201
  Transmission Date: 20050211
  Serious: Yes (Death)
  Sender: FDA-Public Use
  Company Number: USA-2003-0011709

PATIENT
  Age: 43 Year
  Sex: Male

DRUGS (15)
  1. MORPHINE SULFATE [Suspect]
  2. HYDROCODONE BITARTRATE (SIMILAR TO IND 59175) (HYDROCODONE BITARTRATE) [Suspect]
  3. ACETAMINOPHEN [Suspect]
  4. CHLORPHENIRAMINE TAB [Suspect]
  5. CYCLOBENZAPRINE HCL [Suspect]
  6. EPHEDRINE (EPHEDRINE) [Suspect]
  7. GABAPENTIN [Suspect]
  8. FLUCONAZOLE [Suspect]
  9. PROMETHAZINE [Suspect]
  10. MEPERIDINE HCL [Suspect]
  11. CARISOPRODOL (CARISOPRODOL) [Suspect]
  12. MEPROBAMATE [Suspect]
  13. SERTRALINE HCL [Suspect]
  14. CODEINE (CODEINE) [Suspect]
  15. METOPROLOL TARTRATE [Suspect]

REACTIONS (1)
  - ACCIDENTAL OVERDOSE [None]
